FAERS Safety Report 16253393 (Version 1)
Quarter: 2019Q2

REPORT INFORMATION
  Report Type: Spontaneous
  Country: US (occurrence: US)
  Receive Date: 20190430
  Receipt Date: 20190430
  Transmission Date: 20190711
  Serious: No
  Sender: FDA-Public Use
  Company Number: US-JNJFOC-20190419166

PATIENT
  Sex: Female
  Weight: 54.43 kg

DRUGS (3)
  1. LATANOPROST. [Concomitant]
     Active Substance: LATANOPROST
     Indication: OCULAR DISCOMFORT
     Dosage: 1 DROP IN EACH EYE ONCE A DAY AT NIGHT
     Route: 047
  2. TYLENOL [Suspect]
     Active Substance: ACETAMINOPHEN
     Route: 065
  3. TYLENOL [Suspect]
     Active Substance: ACETAMINOPHEN
     Indication: EYE PAIN
     Route: 065

REACTIONS (1)
  - Product use in unapproved indication [Unknown]
